FAERS Safety Report 4685282-3 (Version None)
Quarter: 2005Q2

REPORT INFORMATION
  Report Type: 
  Country: None (occurrence: None)
  Receive Date: 20050603
  Receipt Date: 20050524
  Transmission Date: 20051028
  Serious: Yes (Other)
  Sender: FDA-Public Use
  Company Number: 2005027606

PATIENT
  Age: 44 Year
  Sex: Male

DRUGS (7)
  1. CELEBREX [Suspect]
     Indication: RHEUMATOID ARTHRITIS
     Dosage: 400 MG (200 MG, 2 IN 1 D); ORAL
     Route: 048
     Dates: start: 20030327, end: 20050228
  2. METHOTREXATE [Suspect]
     Indication: RHEUMATOID ARTHRITIS
     Dosage: UNK (15 MG, 1 WK); ORAL
     Route: 048
     Dates: start: 20021111
  3. PREDNISONE TAB [Concomitant]
  4. OMEPRAZOLE [Concomitant]
  5. FOLIC ACID [Concomitant]
  6. FOSAMAX [Concomitant]
  7. CARBASALATE [Concomitant]

REACTIONS (4)
  - CARDIAC DISORDER [None]
  - CORONARY ARTERY STENOSIS [None]
  - FEELING ABNORMAL [None]
  - HEART RATE IRREGULAR [None]
